FAERS Safety Report 23463445 (Version 1)
Quarter: 2024Q1

REPORT INFORMATION
  Report Type: Spontaneous
  Country: US (occurrence: US)
  Receive Date: 20240131
  Receipt Date: 20240131
  Transmission Date: 20240409
  Serious: No
  Sender: FDA-Public Use
  Company Number: US-AIMMUNE THERAPEUTICS, INC.-2023AIMT01182

PATIENT

DRUGS (9)
  1. VOWST [Suspect]
     Active Substance: DONOR HUMAN STOOL SPORES (ETHANOL TREATED)
     Indication: Clostridium difficile infection
     Dosage: 4 CAPSULES, 1X/DAY
     Route: 048
     Dates: start: 202311
  2. ROSUVASTATIN [Concomitant]
     Active Substance: ROSUVASTATIN
     Indication: Blood cholesterol increased
     Dosage: 10MG, 1X/DAY
  3. PEPCID AC [Concomitant]
     Active Substance: FAMOTIDINE
     Indication: Gastrooesophageal reflux disease
     Dosage: UNK, 2X/DAY
  4. SACCHAROMYCES CEREVISIAE [Concomitant]
     Active Substance: SACCHAROMYCES CEREVISIAE
     Indication: Clostridium difficile infection
     Dosage: 5 BILLION CFU, 1X/DAY
  5. IPRATROPIUM BROMIDE [Concomitant]
     Active Substance: IPRATROPIUM BROMIDE\IPRATROPIUM BROMIDE ANHYDROUS
     Indication: Rhinitis
     Dosage: UP TO 4 TIMES DAILY
  6. AIRBORNE [Concomitant]
     Active Substance: HERBALS\MINERALS\VITAMINS
     Indication: Supplementation therapy
     Dosage: UNK, 1X/DAY
  7. SUDAFED CO [Concomitant]
     Indication: Rhinitis
     Dosage: UNK, AS NEEDED
  8. GUAIFENESIN [Concomitant]
     Active Substance: GUAIFENESIN
     Indication: Rhinitis
     Dosage: 400 MG, AS NEEDED
  9. THERACRAN ONE [Concomitant]
     Indication: Supplementation therapy
     Dosage: EVERY COUPLE OF DAYS

REACTIONS (1)
  - Diarrhoea [Recovered/Resolved]

NARRATIVE: CASE EVENT DATE: 20231101
